FAERS Safety Report 8347388-7 (Version None)
Quarter: 2012Q2

REPORT INFORMATION
  Report Type: 
  Country: None (occurrence: None)
  Receive Date: 20120507
  Receipt Date: 20120430
  Transmission Date: 20120825
  Serious: Yes (Hospitalization, Other)
  Sender: FDA-Public Use
  Company Number: ACO_29705_2012

PATIENT
  Age: 64 Year
  Sex: Female
  Weight: 79.4 kg

DRUGS (5)
  1. BACLOFEN [Concomitant]
  2. MULTI-VITAMIN [Concomitant]
  3. AMPYRA [Suspect]
     Indication: GAIT DISTURBANCE
     Dosage: 10 MG, BID, ORAL
     Route: 048
     Dates: start: 20101201, end: 20111201
  4. BETASERON [Concomitant]
  5. TOVIAZ [Concomitant]

REACTIONS (3)
  - UROSEPSIS [None]
  - MENTAL STATUS CHANGES [None]
  - OVARIAN CANCER [None]
